FAERS Safety Report 23841103 (Version 1)
Quarter: 2024Q2

REPORT INFORMATION
  Report Type: Report from Study
  Country: CO (occurrence: CO)
  Receive Date: 20240510
  Receipt Date: 20240510
  Transmission Date: 20240716
  Serious: Yes (Hospitalization)
  Sender: FDA-Public Use
  Company Number: CO-RECORDATI RARE DISEASES-2024003147

PATIENT

DRUGS (7)
  1. CYSTAGON [Suspect]
     Active Substance: CYSTEAMINE BITARTRATE
     Indication: Cystinosis
     Dosage: 2400MG EVERY 24 HOURS
     Route: 048
     Dates: start: 20111001
  2. CYSTADROPS [Suspect]
     Active Substance: CYSTEAMINE HYDROCHLORIDE
     Indication: Cystinosis
     Dosage: 2 GTT DROPS, Q6H (1 DROP IN EACH EYE EVERY 6 HOURS IN WAKEFULNESS)
     Route: 047
     Dates: start: 20110101
  3. LEVOTHYROXINE [Concomitant]
     Active Substance: LEVOTHYROXINE\LEVOTHYROXINE SODIUM
     Indication: Hypothyroidism
     Dosage: 100 MICROGRAM, EVERY 24 HOURS
     Route: 048
  4. PREDNISOLONE [Concomitant]
     Active Substance: PREDNISOLONE
     Indication: Steroid therapy
     Dosage: 5 MG/EACH LMV
  5. AMLODIPINE [Concomitant]
     Active Substance: AMLODIPINE BESYLATE
     Indication: Blood pressure management
     Dosage: 10 MILLIGRAM EVERY 24 HOURS
     Route: 048
  6. PROPRANOLOL [Concomitant]
     Active Substance: PROPRANOLOL HYDROCHLORIDE
     Indication: Blood pressure management
     Dosage: 20 MILLIGRAM, Q12H
     Route: 048
  7. CALCIUM CARBONATE\VITAMIN D [Concomitant]
     Active Substance: CALCIUM CARBONATE\VITAMIN D
     Indication: Supplementation therapy
     Dosage: 1 TABLET/EVERY 24 HOURS
     Route: 048

REACTIONS (2)
  - Hospitalisation [Recovering/Resolving]
  - Inappropriate schedule of product administration [Recovered/Resolved]

NARRATIVE: CASE EVENT DATE: 20110101
